FAERS Safety Report 7971525-7 (Version None)
Quarter: 2011Q4

REPORT INFORMATION
  Report Type: 
  Country: None (occurrence: None)
  Receive Date: 20111212
  Receipt Date: 20111128
  Transmission Date: 20120403
  Serious: Yes (Life-Threatening, Hospitalization, Other)
  Sender: FDA-Public Use
  Company Number: DE-ELI_LILLY_AND_COMPANY-DE201111008377

PATIENT
  Age: 48 Year
  Sex: Male

DRUGS (8)
  1. LITHIUM-DURILES [Concomitant]
     Dosage: 900 MG, UNK
     Route: 048
     Dates: start: 20110603, end: 20110606
  2. SERTRALINE HYDROCHLORIDE [Concomitant]
  3. MIRTAZAPINE [Concomitant]
  4. MAPROTILINE [Concomitant]
  5. LORAZEPAM [Concomitant]
  6. FLUOXETINE [Suspect]
     Dosage: 10 MG, QD
     Route: 048
     Dates: start: 20110517, end: 20110521
  7. FLUOXETINE [Suspect]
     Dosage: 20 MG, QD
     Route: 048
     Dates: start: 20110522, end: 20110606
  8. AMITRIPTYLINE HCL [Concomitant]

REACTIONS (16)
  - HYPOTONIA [None]
  - SUICIDE ATTEMPT [None]
  - BLOOD PRESSURE INCREASED [None]
  - POOR QUALITY SLEEP [None]
  - IMPULSIVE BEHAVIOUR [None]
  - AGITATION [None]
  - NEGATIVE THOUGHTS [None]
  - CARDIOVASCULAR DISORDER [None]
  - PALLOR [None]
  - UNRESPONSIVE TO STIMULI [None]
  - STRESS [None]
  - SOMNOLENCE [None]
  - SUICIDAL IDEATION [None]
  - ENDOTRACHEAL INTUBATION [None]
  - ANTISOCIAL BEHAVIOUR [None]
  - FATIGUE [None]
